FAERS Safety Report 25557602 (Version 1)
Quarter: 2025Q3

REPORT INFORMATION
  Report Type: Spontaneous
  Country: EU (occurrence: EU)
  Receive Date: 20250715
  Receipt Date: 20250715
  Transmission Date: 20251020
  Serious: Yes (Hospitalization)
  Sender: MYLAN
  Company Number: None

PATIENT
  Age: 16 Year
  Sex: Female

DRUGS (8)
  1. SERTRALINE [Suspect]
     Active Substance: SERTRALINE HYDROCHLORIDE
     Indication: Product used for unknown indication
     Dosage: 1250 MILLIGRAM, QD
     Dates: start: 20241122, end: 20241122
  2. SERTRALINE [Suspect]
     Active Substance: SERTRALINE HYDROCHLORIDE
     Dosage: 1250 MILLIGRAM, QD
     Route: 048
     Dates: start: 20241122, end: 20241122
  3. SERTRALINE [Suspect]
     Active Substance: SERTRALINE HYDROCHLORIDE
     Dosage: 1250 MILLIGRAM, QD
     Route: 048
     Dates: start: 20241122, end: 20241122
  4. SERTRALINE [Suspect]
     Active Substance: SERTRALINE HYDROCHLORIDE
     Dosage: 1250 MILLIGRAM, QD
     Dates: start: 20241122, end: 20241122
  5. CYAMEMAZINE [Suspect]
     Active Substance: CYAMEMAZINE
     Indication: Product used for unknown indication
     Dosage: 15 MILLILITER, QD (ORAL SOLUTION IN DROPS )
     Dates: start: 20241122, end: 20241122
  6. CYAMEMAZINE [Suspect]
     Active Substance: CYAMEMAZINE
     Dosage: 15 MILLILITER, QD (ORAL SOLUTION IN DROPS )
     Route: 048
     Dates: start: 20241122, end: 20241122
  7. CYAMEMAZINE [Suspect]
     Active Substance: CYAMEMAZINE
     Dosage: 15 MILLILITER, QD (ORAL SOLUTION IN DROPS )
     Route: 048
     Dates: start: 20241122, end: 20241122
  8. CYAMEMAZINE [Suspect]
     Active Substance: CYAMEMAZINE
     Dosage: 15 MILLILITER, QD (ORAL SOLUTION IN DROPS )
     Dates: start: 20241122, end: 20241122

REACTIONS (5)
  - Poisoning deliberate [Recovered/Resolved]
  - Serotonin syndrome [Recovered/Resolved]
  - Somnolence [Recovered/Resolved]
  - Hypotension [Recovered/Resolved]
  - Intentional overdose [Unknown]

NARRATIVE: CASE EVENT DATE: 20241122
